FAERS Safety Report 10273631 (Version 1)
Quarter: 2014Q2

REPORT INFORMATION
  Report Type: Spontaneous
  Country: US (occurrence: None)
  Receive Date: 20140630
  Receipt Date: 20140630
  Transmission Date: 20141212
  Serious: Yes (Hospitalization)
  Sender: FDA-Public Use
  Company Number: SYM-2014-22280

PATIENT
  Age: 67 Year
  Sex: Male

DRUGS (8)
  1. WELLBUTRIN SR [Suspect]
     Indication: PRODUCT USED FOR UNKNOWN INDICATION
     Dates: start: 20030922, end: 20031216
  2. WELLBUTRIN XL [Suspect]
     Indication: PRODUCT USED FOR UNKNOWN INDICATION
     Dates: start: 20080904
  3. AVODART [Suspect]
     Indication: PRODUCT USED FOR UNKNOWN INDICATION
     Dates: start: 20051111
  4. NARCAN [Suspect]
     Indication: PRODUCT USED FOR UNKNOWN INDICATION
  5. NALTREXONE [Suspect]
     Indication: PRODUCT USED FOR UNKNOWN INDICATION
  6. INFLUENZA VACCINE (INFLUENZA VACCINE) [Concomitant]
  7. PNEUMONIA VACCINE (VACCINES) (NULL) [Concomitant]
  8. REMICADE (INFLIXIMAB) (INFLIXIMAB) [Concomitant]

REACTIONS (14)
  - Prostatectomy [None]
  - Bladder operation [None]
  - Life support [None]
  - Pneumonia [None]
  - Cataract operation [None]
  - Blood pressure fluctuation [None]
  - Hyperhidrosis [None]
  - Pyrexia [None]
  - Cystitis [None]
  - Chest pain [None]
  - Anaemia [None]
  - Surgery [None]
  - Cyst [None]
  - Catheterisation cardiac [None]
